FAERS Safety Report 17304693 (Version 2)
Quarter: 2020Q1

REPORT INFORMATION
  Report Type: Spontaneous
  Country: JP (occurrence: JP)
  Receive Date: 20200122
  Receipt Date: 20200129
  Transmission Date: 20200409
  Serious: Yes (Other)
  Sender: FDA-Public Use
  Company Number: JP-GLAXOSMITHKLINE-JP2020JPN009294

PATIENT
  Age: 56 Year
  Sex: Female

DRUGS (1)
  1. ALLERMIST [Suspect]
     Active Substance: FLUTICASONE FUROATE
     Dosage: UNK
     Route: 045

REACTIONS (2)
  - Palpitations [Recovered/Resolved]
  - Arrhythmia [Recovered/Resolved]
